FAERS Safety Report 9820221 (Version 1)
Quarter: 2013Q4

REPORT INFORMATION
  Report Type: Spontaneous
  Country: US (occurrence: None)
  Receive Date: 20131223
  Receipt Date: 20131223
  Transmission Date: 20140711
  Serious: No
  Sender: FDA-Public Use
  Company Number: 221099

PATIENT
  Age: 49 Year
  Sex: Female

DRUGS (2)
  1. PICATO [Suspect]
     Indication: HEAVY EXPOSURE TO ULTRAVIOLET LIGHT
     Route: 061
     Dates: start: 20130327, end: 20130329
  2. ZYRTEC D (CIRRUS) [Concomitant]

REACTIONS (2)
  - Application site erythema [None]
  - Application site pruritus [None]
